FAERS Safety Report 9682884 (Version 1)
Quarter: 2013Q4

REPORT INFORMATION
  Report Type: Spontaneous
  Country: FR (occurrence: FR)
  Receive Date: 20131112
  Receipt Date: 20131112
  Transmission Date: 20140711
  Serious: Yes (Hospitalization)
  Sender: FDA-Public Use
  Company Number: FR-TEVA-441936ISR

PATIENT
  Age: 88 Year
  Sex: Female

DRUGS (9)
  1. AIROMIR AUTOHALER 100 ?G/DOSE, SUSPENSION FOR INHALATION [Suspect]
     Indication: BRONCHITIS
     Dosage: 6 DOSAGE FORMS DAILY;
     Route: 055
     Dates: start: 20130308, end: 20130318
  2. AMOXICILLINE [Suspect]
     Indication: BRONCHITIS
     Dosage: 1500 MILLIGRAM DAILY;
     Route: 048
     Dates: start: 20130308, end: 20130313
  3. ARICEPT 10 MG [Concomitant]
     Dosage: 10 MILLIGRAM DAILY;
  4. KARDEGIC 75 MG [Concomitant]
     Dosage: 75 MILLIGRAM DAILY;
  5. VASTEN 20 MG [Concomitant]
     Dosage: 20 MILLIGRAM DAILY;
  6. HEPTAMYL [Concomitant]
     Dosage: 6 TABLET DAILY;
  7. DEROXAT 20 MG [Concomitant]
     Dosage: 20 MILLIGRAM DAILY;
  8. AMYCOR [Concomitant]
  9. SMECTA [Concomitant]
     Dosage: 1 DOSAGE FORMS DAILY;

REACTIONS (1)
  - Rash macular [Recovered/Resolved]
